FAERS Safety Report 11177213 (Version 1)
Quarter: 2015Q2

REPORT INFORMATION
  Report Type: Spontaneous
  Country: GB (occurrence: GB)
  Receive Date: 20150610
  Receipt Date: 20150610
  Transmission Date: 20150821
  Serious: Yes (Other)
  Sender: FDA-Public Use
  Company Number: GB-TEVA-568245ACC

PATIENT
  Age: 49 Year
  Sex: Female

DRUGS (8)
  1. CARDURA XL [Concomitant]
     Active Substance: DOXAZOSIN MESYLATE
  2. VENLAFAXINE [Suspect]
     Active Substance: VENLAFAXINE HYDROCHLORIDE
     Indication: DEPRESSION
     Dosage: 1 DOSAGE FORMS DAILY;
     Route: 048
     Dates: start: 20150505, end: 20150507
  3. GABAPENTIN. [Concomitant]
     Active Substance: GABAPENTIN
  4. FELODIPINE. [Concomitant]
     Active Substance: FELODIPINE
  5. RAMIPRIL. [Concomitant]
     Active Substance: RAMIPRIL
  6. FEXOFENADINE HYDROCHLORIDE. [Concomitant]
     Active Substance: FEXOFENADINE HYDROCHLORIDE
  7. MIRTAZAPINE. [Concomitant]
     Active Substance: MIRTAZAPINE
  8. INDAPAMIDE. [Concomitant]
     Active Substance: INDAPAMIDE

REACTIONS (3)
  - Hypoaesthesia [Unknown]
  - Pharyngeal oedema [Recovered/Resolved]
  - Pharyngeal hypoaesthesia [Unknown]

NARRATIVE: CASE EVENT DATE: 20150505
